FAERS Safety Report 5772066-8 (Version None)
Quarter: 2008Q2

REPORT INFORMATION
  Report Type: 
  Country: None (occurrence: None)
  Receive Date: 20080613
  Receipt Date: 20080606
  Transmission Date: 20081010
  Serious: Yes (Other)
  Sender: FDA-Public Use
  Company Number: DK-ASTRAZENECA-2008SE02329

PATIENT
  Age: 25979 Day
  Sex: Male
  Weight: 87 kg

DRUGS (3)
  1. SELO-ZOK [Suspect]
     Route: 048
  2. ANTICOAGULANT THERAPY [Concomitant]
     Dosage: 75 MG
  3. SALICYLIC ACID [Concomitant]
     Dosage: 150 MG

REACTIONS (1)
  - APTYALISM [None]
